FAERS Safety Report 11574025 (Version 1)
Quarter: 2015Q3

REPORT INFORMATION
  Report Type: Spontaneous
  Country: US (occurrence: US)
  Receive Date: 20150930
  Receipt Date: 20150930
  Transmission Date: 20151125
  Serious: No
  Sender: FDA-Public Use
  Company Number: US-SUN PHARMACEUTICAL INDUSTRIES LTD-2015US-100856

PATIENT
  Age: 63 Year
  Sex: Female
  Weight: 88.44 kg

DRUGS (1)
  1. HYDROCODONE AND ACETAMINOPHEN [Suspect]
     Active Substance: ACETAMINOPHEN\HYDROCODONE
     Indication: ANALGESIC THERAPY
     Dosage: 8 DF, DAILY
     Route: 048
     Dates: start: 201507

REACTIONS (2)
  - Drug ineffective [Unknown]
  - Product substitution issue [Unknown]

NARRATIVE: CASE EVENT DATE: 201507
